FAERS Safety Report 8658982 (Version 4)
Quarter: 2013Q1

REPORT INFORMATION
  Report Type: Spontaneous
  Country: US (occurrence: US)
  Receive Date: 20120710
  Receipt Date: 20130116
  Transmission Date: 20140127
  Serious: Yes (Hospitalization, Other)
  Sender: FDA-Public Use
  Company Number: US-CELGENEUS-163-21880-12040039

PATIENT
  Age: 76 None
  Sex: Female

DRUGS (9)
  1. REVLIMID [Suspect]
     Indication: PLASMA CELL MYELOMA
     Dosage: 25 MILLIGRAM
     Route: 048
     Dates: start: 20120308
  2. REVLIMID [Suspect]
     Dosage: 10 MILLIGRAM
     Route: 048
     Dates: start: 201205
  3. DEXAMETHASONE [Concomitant]
     Indication: PRODUCT USED FOR UNKNOWN INDICATION
     Route: 065
  4. DEXAMETHASONE [Concomitant]
     Dosage: 20 MILLIGRAM
     Route: 065
  5. MESTINON [Concomitant]
     Indication: PRODUCT USED FOR UNKNOWN INDICATION
     Route: 065
  6. ZOMETA [Concomitant]
     Indication: PRODUCT USED FOR UNKNOWN INDICATION
     Route: 065
  7. CARAFATE [Concomitant]
     Indication: ULCER
     Route: 065
  8. PRILOSEC [Concomitant]
     Indication: ULCER
     Route: 065
  9. AUGMENTIN [Concomitant]
     Indication: URINARY TRACT INFECTION
     Route: 065

REACTIONS (10)
  - Cardiac failure congestive [Recovered/Resolved]
  - Diarrhoea [Unknown]
  - Duodenal ulcer [Unknown]
  - Urinary tract infection [Unknown]
  - Drug dose omission [Unknown]
  - Fatigue [Unknown]
  - Miliaria [Recovered/Resolved]
  - Feeling abnormal [Unknown]
  - Dysgeusia [Unknown]
  - Neuropathy peripheral [Unknown]
